FAERS Safety Report 17315934 (Version 1)
Quarter: 2020Q1

REPORT INFORMATION
  Report Type: Spontaneous
  Country: DE (occurrence: DE)
  Receive Date: 20200124
  Receipt Date: 20200124
  Transmission Date: 20200409
  Serious: Yes (Other)
  Sender: FDA-Public Use
  Company Number: DE-MYLANLABS-2020M1006963

PATIENT
  Sex: Male

DRUGS (4)
  1. CANDESARTAN. [Suspect]
     Active Substance: CANDESARTAN
     Dosage: 4 MG, UNKNOWN
     Route: 065
  2. CANDESARTAN. [Suspect]
     Active Substance: CANDESARTAN
     Indication: HYPERTENSION
     Dosage: 32 MG, UNKNOWN
     Route: 065
  3. CANDESARTAN. [Suspect]
     Active Substance: CANDESARTAN
     Dosage: 16 MG, UNKNOWN (1/2 DF OF 32 MG)
     Route: 065
     Dates: start: 2019, end: 2019
  4. CANDESARTAN. [Suspect]
     Active Substance: CANDESARTAN
     Dosage: 16 MG, UNKNOWN (2 DF OF 8 MG)
     Route: 065
     Dates: start: 2019

REACTIONS (3)
  - Hypertension [Unknown]
  - Weight decreased [Unknown]
  - Wrong technique in product usage process [Unknown]

NARRATIVE: CASE EVENT DATE: 2019
